FAERS Safety Report 12486955 (Version 1)
Quarter: 2016Q2

REPORT INFORMATION
  Report Type: Spontaneous
  Country: US (occurrence: None)
  Receive Date: 20160621
  Receipt Date: 20160621
  Transmission Date: 20160815
  Serious: Yes (Life-Threatening, Hospitalization)
  Sender: FDA-Public Use
  Company Number: None

PATIENT
  Age: 64 Year
  Sex: Female
  Weight: 109 kg

DRUGS (1)
  1. ADEMPAS [Suspect]
     Active Substance: RIOCIGUAT
     Indication: PULMONARY ARTERIAL HYPERTENSION
     Route: 048
     Dates: start: 20160411, end: 20160514

REACTIONS (6)
  - Acute kidney injury [None]
  - Lung infiltration [None]
  - Eosinophilia [None]
  - Dyspnoea [None]
  - Pulmonary oedema [None]
  - Hypotension [None]

NARRATIVE: CASE EVENT DATE: 20160508
